FAERS Safety Report 23182665 (Version 1)
Quarter: 2023Q4

REPORT INFORMATION
  Report Type: Spontaneous
  Country: GB (occurrence: GB)
  Receive Date: 20231114
  Receipt Date: 20231114
  Transmission Date: 20240110
  Serious: Yes (Other)
  Sender: FDA-Public Use
  Company Number: None

PATIENT
  Age: 27 Year
  Sex: Female
  Weight: 48 kg

DRUGS (1)
  1. AMPHETAMINE [Suspect]
     Active Substance: AMPHETAMINE
     Indication: Attention deficit hyperactivity disorder
     Dosage: 10 MILLIGRAM DAILY;  IN THE MORNING,AT LUNCH; ;
     Route: 065

REACTIONS (4)
  - Heart rate [Recovered/Resolved]
  - Hypoaesthesia [Recovered/Resolved]
  - Paranoia [Recovered/Resolved]
  - Depressed mood [Recovered/Resolved]
